FAERS Safety Report 21096952 (Version 1)
Quarter: 2022Q3

REPORT INFORMATION
  Report Type: Report from Study
  Country: US (occurrence: US)
  Receive Date: 20220718
  Receipt Date: 20220718
  Transmission Date: 20221027
  Serious: Yes (Hospitalization, Other)
  Sender: FDA-Public Use
  Company Number: US-BRISTOL-MYERS SQUIBB COMPANY-BMS-2022-039695

PATIENT
  Age: 65 Year
  Sex: Male
  Weight: 107 kg

DRUGS (12)
  1. NIVOLUMAB [Suspect]
     Active Substance: NIVOLUMAB
     Indication: Glioblastoma multiforme
     Route: 065
     Dates: end: 20220217
  2. IPILIMUMAB [Suspect]
     Active Substance: IPILIMUMAB
     Indication: Glioblastoma multiforme
     Route: 065
     Dates: end: 20220217
  3. dexamethaxone (Decadron) [Concomitant]
     Indication: Arthralgia
     Route: 048
     Dates: start: 20220304
  4. dexamethaxone (Decadron) [Concomitant]
     Route: 065
     Dates: start: 20220226
  5. dexamethaxone (Decadron) [Concomitant]
     Dosage: BOLUS.
     Route: 065
     Dates: start: 20220302
  6. LOVENOX [Concomitant]
     Active Substance: ENOXAPARIN SODIUM
     Indication: Product used for unknown indication
     Dosage: SYRINGE, 0. 5 MG/KG X 112 KG.
     Route: 058
  7. KEPPRA [Concomitant]
     Active Substance: LEVETIRACETAM
     Indication: Product used for unknown indication
     Route: 048
  8. ZESTRIL [Concomitant]
     Active Substance: LISINOPRIL
     Indication: Product used for unknown indication
     Route: 048
  9. pantoprazole DR (Protonix) [Concomitant]
     Indication: Product used for unknown indication
     Dosage: BEFORE BREAKFAST.
     Route: 065
  10. TYLENOL [Concomitant]
     Active Substance: ACETAMINOPHEN
     Indication: Pain
     Dosage: PRN FOR MILD PAIN (1-3), FEVER GREATER THAN 38.3 ?C
     Route: 048
  11. TYLENOL [Concomitant]
     Active Substance: ACETAMINOPHEN
     Indication: Pyrexia
     Route: 065
     Dates: start: 20220223
  12. TYLENOL [Concomitant]
     Active Substance: ACETAMINOPHEN
     Indication: Arthralgia

REACTIONS (1)
  - Encephalopathy [Recovering/Resolving]

NARRATIVE: CASE EVENT DATE: 20220301
